FAERS Safety Report 24113354 (Version 1)
Quarter: 2024Q3

REPORT INFORMATION
  Report Type: Spontaneous
  Country: CA (occurrence: CA)
  Receive Date: 20240719
  Receipt Date: 20240719
  Transmission Date: 20241016
  Serious: Yes (Other)
  Sender: TEVA
  Company Number: CA-TEVA-VS-3221333

PATIENT
  Age: 58 Year
  Sex: Male

DRUGS (1)
  1. OXALIPLATIN [Suspect]
     Active Substance: OXALIPLATIN
     Indication: Chemotherapy
     Dosage: TIME INTERVAL: CYCLICAL: DOSAGE: 5 MG/ML SOLUTION INTRAVENOUS
     Route: 041

REACTIONS (6)
  - Pneumonia [Unknown]
  - Chills [Unknown]
  - Heart rate increased [Unknown]
  - Hypotension [Unknown]
  - Nausea [Unknown]
  - Pyrexia [Unknown]
